FAERS Safety Report 25895583 (Version 1)
Quarter: 2025Q4

REPORT INFORMATION
  Report Type: Other
  Country: EU (occurrence: EU)
  Receive Date: 20251008
  Receipt Date: 20251008
  Transmission Date: 20260117
  Serious: Yes (Life-Threatening, Hospitalization, Other)
  Sender: APPCO PHARMA LLC
  Company Number: EU-Appco Pharma LLC-2186148

PATIENT
  Age: 47 Year
  Sex: Male

DRUGS (3)
  1. SERTRALINE [Suspect]
     Active Substance: SERTRALINE HYDROCHLORIDE
     Indication: Depression
  2. ROSUVASTATIN [Suspect]
     Active Substance: ROSUVASTATIN
  3. EZETIMIBE [Suspect]
     Active Substance: EZETIMIBE

REACTIONS (6)
  - Anuria [Not Recovered/Not Resolved]
  - Rhabdomyolysis [Recovering/Resolving]
  - Acute kidney injury [Not Recovered/Not Resolved]
  - Metabolic acidosis [Not Recovered/Not Resolved]
  - Cardiac failure [Recovering/Resolving]
  - Hyperkalaemia [Recovering/Resolving]
